FAERS Safety Report 16785649 (Version 2)
Quarter: 2019Q3

REPORT INFORMATION
  Report Type: Spontaneous
  Country: US (occurrence: US)
  Receive Date: 20190909
  Receipt Date: 20190926
  Transmission Date: 20191005
  Serious: Yes (Other)
  Sender: FDA-Public Use
  Company Number: US-PFIZER INC-2019386071

PATIENT
  Age: 42 Year
  Sex: Female

DRUGS (3)
  1. MEPIVACAINE HCL [Suspect]
     Active Substance: MEPIVACAINE HYDROCHLORIDE
     Dosage: 1.8 ML, UNK (SUPRAPERIOSTEAL INJECTION)
  2. MEPIVACAINE HCL [Suspect]
     Active Substance: MEPIVACAINE HYDROCHLORIDE
     Dosage: UNK (THIRD DENTAL TREATMENT, MAXILLARY BLOCK)
  3. MEPIVACAINE HCL [Suspect]
     Active Substance: MEPIVACAINE HYDROCHLORIDE
     Dosage: 1.8 ML, UNK (SUPRAPERIOSTEAL INJECTION, ON HER NEXT VISIT, AFTER THE SAME ANESTHETIC INJECTION)

REACTIONS (2)
  - Ophthalmoplegia [Recovered/Resolved]
  - Diplopia [Recovered/Resolved]
